FAERS Safety Report 21257230 (Version 3)
Quarter: 2022Q3

REPORT INFORMATION
  Report Type: Spontaneous
  Country: JP (occurrence: JP)
  Receive Date: 20220826
  Receipt Date: 20220909
  Transmission Date: 20221027
  Serious: Yes (Hospitalization, Other)
  Sender: FDA-Public Use
  Company Number: JP-UCBJ-CD202208503UCBPHAPROD

PATIENT
  Age: 58 Year
  Sex: Male

DRUGS (3)
  1. LEVETIRACETAM [Suspect]
     Active Substance: LEVETIRACETAM
     Indication: Temporal lobe epilepsy
     Dosage: 1000MG DAILY
     Route: 048
  2. LEVETIRACETAM [Suspect]
     Active Substance: LEVETIRACETAM
     Dosage: 2000MG DAILY
     Route: 048
  3. PHENYTOIN [Concomitant]
     Active Substance: PHENYTOIN
     Indication: Product used for unknown indication
     Dosage: UNK

REACTIONS (4)
  - Pneumonia [Recovered/Resolved]
  - Partial seizures [Recovered/Resolved]
  - Pyrexia [Recovered/Resolved]
  - Drug eruption [Recovered/Resolved]
